FAERS Safety Report 5745092-2 (Version None)
Quarter: 2008Q2

REPORT INFORMATION
  Report Type: 
  Country: None (occurrence: None)
  Receive Date: 20080521
  Receipt Date: 20080520
  Transmission Date: 20081010
  Serious: Yes (Hospitalization)
  Sender: FDA-Public Use
  Company Number: GB-BRISTOL-MYERS SQUIBB COMPANY-14102743

PATIENT
  Age: 22 Year
  Sex: Female

DRUGS (1)
  1. ABILIFY [Suspect]
     Indication: SCHIZOPHRENIA, PARANOID TYPE
     Dosage: INITIALLY 30MG/D,RESTARTED APR07 WITH 5MG + INCREASED 30MG/D ON 08OCT2007,SINCE 23OCT TAILED OFF

REACTIONS (5)
  - DRUG INEFFECTIVE [None]
  - HALLUCINATION [None]
  - IRRITABILITY [None]
  - PSYCHOTIC DISORDER [None]
  - RESTLESSNESS [None]
